FAERS Safety Report 5221400-6 (Version None)
Quarter: 2007Q1

REPORT INFORMATION
  Report Type: 
  Country: None (occurrence: None)
  Receive Date: 20070126
  Receipt Date: 20070118
  Transmission Date: 20070707
  Serious: Yes (Hospitalization, Other)
  Sender: FDA-Public Use
  Company Number: NZ-SHR-NZ-2007-002540

PATIENT
  Age: 76 Year

DRUGS (6)
  1. SOTALOL HCL [Suspect]
     Indication: HYPERTENSION
     Dosage: 30 MG, 1X/DAY
     Dates: start: 20040101, end: 20060221
  2. LUCRIN [Concomitant]
     Dates: start: 20060201
  3. BENDROFLUAZIDE [Concomitant]
  4. ALLOPURINOL SODIUM [Concomitant]
  5. OMEPRAZOLE [Concomitant]
  6. CANDESARTAN [Concomitant]

REACTIONS (8)
  - ATRIOVENTRICULAR BLOCK FIRST DEGREE [None]
  - ATRIOVENTRICULAR BLOCK SECOND DEGREE [None]
  - BUNDLE BRANCH BLOCK [None]
  - DIZZINESS [None]
  - DYSPNOEA [None]
  - HEART RATE INCREASED [None]
  - PALPITATIONS [None]
  - SYNCOPE [None]
